FAERS Safety Report 9734363 (Version 1)
Quarter: 2013Q4

REPORT INFORMATION
  Report Type: Report from Study
  Country: GB (occurrence: GB)
  Receive Date: 20131206
  Receipt Date: 20131206
  Transmission Date: 20140711
  Serious: Yes (Other)
  Sender: FDA-Public Use
  Company Number: GB-ROCHE-1313643

PATIENT
  Sex: Female
  Weight: 103 kg

DRUGS (3)
  1. RITUXIMAB [Suspect]
     Indication: RHEUMATOID ARTHRITIS
     Dosage: THERAPY: 26/OCT/2011, 22/MAY/2012, 06/JUN/2012
     Route: 065
     Dates: start: 20111011
  2. METHOTREXATE [Concomitant]
  3. HYDROXYCHLOROQUINE [Concomitant]

REACTIONS (1)
  - Skin cancer [Recovered/Resolved]
